FAERS Safety Report 21561794 (Version 1)
Quarter: 2022Q4

REPORT INFORMATION
  Report Type: Spontaneous
  Country: US (occurrence: US)
  Receive Date: 20221107
  Receipt Date: 20221107
  Transmission Date: 20230113
  Serious: Yes (Hospitalization, Other)
  Sender: FDA-Public Use
  Company Number: US-BAYER-2022A134125

PATIENT
  Age: 41 Year
  Sex: Female

DRUGS (21)
  1. MIRENA [Suspect]
     Active Substance: LEVONORGESTREL
     Indication: Intra-uterine contraceptive device insertion
     Dosage: 20?G/DAY
     Route: 015
     Dates: start: 202209
  2. APIXABAN [Concomitant]
     Active Substance: APIXABAN
  3. BLISOVI 24 FE [Concomitant]
     Active Substance: ETHINYL ESTRADIOL\NORETHINDRONE ACETATE
  4. FLUTICASONE [Concomitant]
     Active Substance: FLUTICASONE
  5. OMEPRAZOLE MAGNESIUM [Concomitant]
     Active Substance: OMEPRAZOLE MAGNESIUM
  6. PREDNISONE [Concomitant]
     Active Substance: PREDNISONE
  7. SUCRALFATE [Concomitant]
     Active Substance: SUCRALFATE
  8. AZELASTINE HYDROCHLORIDE\FLUTICASONE PROPIONATE [Concomitant]
     Active Substance: AZELASTINE HYDROCHLORIDE\FLUTICASONE PROPIONATE
  9. DUPIXENT [Concomitant]
     Active Substance: DUPILUMAB
  10. EPINEPHRINE [Concomitant]
     Active Substance: EPINEPHRINE
  11. ESCITALOPRAM [Concomitant]
     Active Substance: ESCITALOPRAM OXALATE
  12. FAMOTIDINE [Concomitant]
     Active Substance: FAMOTIDINE
  13. FERROUS SULFATE [Concomitant]
     Active Substance: FERROUS SULFATE
  14. IPRATROPIUM [Concomitant]
     Active Substance: IPRATROPIUM
  15. LEVALBUTEROL [Suspect]
     Active Substance: LEVALBUTEROL
  16. LEVOCETIRIZINE [Concomitant]
     Active Substance: LEVOCETIRIZINE
  17. MONTELUKAST [Concomitant]
     Active Substance: MONTELUKAST SODIUM
  18. MINERALS\VITAMINS [Concomitant]
     Active Substance: MINERALS\VITAMINS
  19. ONDANSETRON [Concomitant]
     Active Substance: ONDANSETRON
  20. PAXLOVID [Concomitant]
     Active Substance: NIRMATRELVIR\RITONAVIR
  21. TRELEGY ELLIPTA [Concomitant]
     Active Substance: FLUTICASONE FUROATE\UMECLIDINIUM BROMIDE\VILANTEROL TRIFENATATE

REACTIONS (2)
  - Device dislocation [None]
  - Genital haemorrhage [None]
